FAERS Safety Report 12572900 (Version 2)
Quarter: 2016Q3

REPORT INFORMATION
  Report Type: Report from Study
  Country: US (occurrence: US)
  Receive Date: 20160720
  Receipt Date: 20160824
  Transmission Date: 20161109
  Serious: Yes (Hospitalization, Other)
  Sender: FDA-Public Use
  Company Number: US-ROCHE-1795444

PATIENT
  Sex: Female
  Weight: 70.5 kg

DRUGS (15)
  1. DYMISTA [Concomitant]
     Active Substance: AZELASTINE HYDROCHLORIDE\FLUTICASONE PROPIONATE
     Route: 065
  2. ZANTAC [Concomitant]
     Active Substance: RANITIDINE HYDROCHLORIDE
     Route: 065
  3. XYZAL [Concomitant]
     Active Substance: LEVOCETIRIZINE DIHYDROCHLORIDE
     Route: 065
  4. ALBUTEROL. [Concomitant]
     Active Substance: ALBUTEROL
  5. XOLAIR [Suspect]
     Active Substance: OMALIZUMAB
     Indication: URTICARIA
     Route: 058
     Dates: start: 20151119, end: 20160614
  6. BACTRIM [Suspect]
     Active Substance: SULFAMETHOXAZOLE\TRIMETHOPRIM
     Indication: UPPER RESPIRATORY TRACT INFECTION
     Route: 065
     Dates: start: 20150326
  7. NORTRIPTYLINE [Concomitant]
     Active Substance: NORTRIPTYLINE
  8. SOLU-MEDROL [Concomitant]
     Active Substance: METHYLPREDNISOLONE SODIUM SUCCINATE
  9. PREDNISONE. [Concomitant]
     Active Substance: PREDNISONE
  10. XYZAL [Concomitant]
     Active Substance: LEVOCETIRIZINE DIHYDROCHLORIDE
     Dosage: EVERY NIGHT
     Route: 048
  11. CITRUCEL [Concomitant]
     Active Substance: METHYLCELLULOSE (4000 MPA.S)
     Route: 065
  12. EPINEPHRINE. [Concomitant]
     Active Substance: EPINEPHRINE
  13. ZANTAC [Concomitant]
     Active Substance: RANITIDINE HYDROCHLORIDE
     Route: 048
  14. SINGULAIR [Concomitant]
     Active Substance: MONTELUKAST SODIUM
     Dosage: EVERY NIGHT
     Route: 048
  15. LEVOTHYROXINE. [Concomitant]
     Active Substance: LEVOTHYROXINE
     Indication: THYROID DISORDER

REACTIONS (19)
  - Chest discomfort [Recovered/Resolved]
  - Mouth ulceration [Unknown]
  - Fatigue [Unknown]
  - Eye swelling [Unknown]
  - Dyspnoea [Unknown]
  - Chest pain [Unknown]
  - Erythema [Unknown]
  - Pruritus [Unknown]
  - Dizziness [Unknown]
  - Paraesthesia [Recovered/Resolved]
  - Angioedema [Unknown]
  - Anaphylactic reaction [Unknown]
  - Hypoaesthesia [Recovered/Resolved]
  - Sneezing [Unknown]
  - Urticaria [Unknown]
  - Rhinorrhoea [Unknown]
  - Throat tightness [Unknown]
  - Wheezing [Unknown]
  - Nausea [Unknown]
